FAERS Safety Report 4355791-5 (Version None)
Quarter: 2004Q2

REPORT INFORMATION
  Report Type: 
  Country: None (occurrence: None)
  Receive Date: 20040510
  Receipt Date: 20040510
  Transmission Date: 20050107
  Serious: Yes (Life-Threatening, Hospitalization)
  Sender: FDA-Public Use
  Company Number: None

PATIENT
  Age: 86 Year
  Sex: Male

DRUGS (1)
  1. DROTRECOGIN ALPHA (XIGRIS) [Suspect]
     Indication: SEPSIS
     Dosage: 291 MCG/KG/ HR
     Dates: start: 20040221, end: 20040223

REACTIONS (3)
  - GASTROINTESTINAL HAEMORRHAGE [None]
  - HYPOTENSION [None]
  - THROMBOSIS [None]
